FAERS Safety Report 6096836-4 (Version None)
Quarter: 2009Q1

REPORT INFORMATION
  Report Type: 
  Country: None (occurrence: None)
  Receive Date: 20090225
  Receipt Date: 20090220
  Transmission Date: 20090719
  Serious: Yes (Death, Hospitalization)
  Sender: FDA-Public Use
  Company Number: FABR-1000666

PATIENT
  Sex: Female

DRUGS (1)
  1. FABRAZYME [Suspect]
     Indication: FABRY'S DISEASE

REACTIONS (3)
  - DISEASE COMPLICATION [None]
  - SEPSIS [None]
  - UPPER LIMB FRACTURE [None]
